FAERS Safety Report 5261906-7 (Version None)
Quarter: 2007Q1

REPORT INFORMATION
  Report Type: 
  Country: None (occurrence: None)
  Receive Date: 20070310
  Receipt Date: 20070305
  Transmission Date: 20070707
  Serious: Yes (Hospitalization, Other)
  Sender: FDA-Public Use
  Company Number: 2007UW04142

PATIENT
  Age: 47 Year
  Sex: Female
  Weight: 65.8 kg

DRUGS (5)
  1. SEROQUEL [Suspect]
     Route: 048
  2. PROVIGIL [Concomitant]
  3. GEODON [Concomitant]
  4. CLONAZEPAM [Concomitant]
  5. ADDERALL 10 [Concomitant]

REACTIONS (4)
  - CONVULSION [None]
  - FALL [None]
  - ILL-DEFINED DISORDER [None]
  - PNEUMONIA [None]
